FAERS Safety Report 9421753 (Version 1)
Quarter: 2013Q3

REPORT INFORMATION
  Report Type: Spontaneous
  Country: CA (occurrence: CA)
  Receive Date: 20130726
  Receipt Date: 20130726
  Transmission Date: 20140515
  Serious: Yes (Other)
  Sender: FDA-Public Use
  Company Number: CA-ROCHE-1252777

PATIENT
  Age: 70 Year
  Sex: Female
  Weight: 56.75 kg

DRUGS (3)
  1. NAPROSYN [Suspect]
     Indication: PRODUCT USED FOR UNKNOWN INDICATION
     Route: 065
  2. ACTONEL [Concomitant]
     Route: 065
  3. PANTOLOC [Concomitant]
     Route: 065

REACTIONS (2)
  - Blood pressure fluctuation [Not Recovered/Not Resolved]
  - Chest pain [Not Recovered/Not Resolved]
